FAERS Safety Report 8780366 (Version 1)
Quarter: 2012Q4

REPORT INFORMATION
  Report Type: Spontaneous
  Country: ES (occurrence: None)
  Receive Date: 20120829
  Receipt Date: 20120829
  Transmission Date: 20130627
  Serious: Yes (Other)
  Sender: FDA-Public Use
  Company Number: 1129529

PATIENT
  Age: 52 Year
  Sex: Female

DRUGS (3)
  1. DOCETAXEL (TAXOTERE) [Suspect]
     Indication: ESOPHAGEAL SQUAMOUS CELL CARCINOMA
     Dosage: every 2 weeks
  2. GRAPEFRUIT JUICE [Suspect]
  3. GEMCITABINE HYDROCHLORIDE [Concomitant]

REACTIONS (8)
  - Drug interaction [None]
  - Drug clearance decreased [None]
  - Aspartate aminotransferase increased [None]
  - Alanine aminotransferase increased [None]
  - Blood alkaline phosphatase increased [None]
  - Neutrophil count decreased [None]
  - Food interaction [None]
  - Haematotoxicity [None]
